FAERS Safety Report 9189503 (Version 1)
Quarter: 2013Q1

REPORT INFORMATION
  Report Type: Spontaneous
  Country: US (occurrence: US)
  Receive Date: 20130326
  Receipt Date: 20130326
  Transmission Date: 20140127
  Serious: No
  Sender: FDA-Public Use
  Company Number: US-JNJFOC-20130208060

PATIENT
  Age: 38 None
  Sex: Male
  Weight: 83.92 kg

DRUGS (3)
  1. INVEGA [Suspect]
     Indication: SCHIZOPHRENIA
     Route: 048
     Dates: start: 201301
  2. INVEGA [Suspect]
     Indication: SCHIZOPHRENIA
     Route: 048
     Dates: start: 201209, end: 201301
  3. SEROQUEL [Concomitant]
     Indication: SLEEP DISORDER THERAPY
     Route: 065
     Dates: start: 201209

REACTIONS (3)
  - Drug ineffective [Not Recovered/Not Resolved]
  - Medication residue present [Recovered/Resolved]
  - Abnormal faeces [Unknown]
